FAERS Safety Report 7913684 (Version 2)
Quarter: 2013Q2

REPORT INFORMATION
  Report Type: Spontaneous
  Country: FR (occurrence: FR)
  Receive Date: 20110425
  Receipt Date: 20130618
  Transmission Date: 20140414
  Serious: Yes (Hospitalization, Other)
  Sender: FDA-Public Use
  Company Number: FR-PFIZER INC-2011088414

PATIENT
  Age: 85 Year
  Sex: Male

DRUGS (6)
  1. CORDARONE [Suspect]
     Dosage: UNK
     Route: 048
     Dates: start: 20101209, end: 2011
  2. ALLOPURINOL [Concomitant]
     Dosage: UNK
  3. AMLOR [Concomitant]
     Dosage: UNK
  4. EUPANTOL [Concomitant]
     Dosage: UNK
  5. PREVISCAN [Concomitant]
     Dosage: UNK
  6. HEMIGOXINE NATIVELLE [Concomitant]
     Dosage: UNK

REACTIONS (2)
  - Interstitial lung disease [Recovering/Resolving]
  - Osteoarthritis [Unknown]
